FAERS Safety Report 12749615 (Version 1)
Quarter: 2016Q3

REPORT INFORMATION
  Report Type: Spontaneous
  Country: GB (occurrence: GB)
  Receive Date: 20160916
  Receipt Date: 20160916
  Transmission Date: 20161109
  Serious: Yes (Life-Threatening)
  Sender: FDA-Public Use
  Company Number: GB-ASTRAZENECA-2016SE97686

PATIENT
  Age: 33 Year
  Sex: Male
  Weight: 53.9 kg

DRUGS (2)
  1. SERTRALINE [Suspect]
     Active Substance: SERTRALINE HYDROCHLORIDE
     Route: 065
  2. QUETIAPINE. [Suspect]
     Active Substance: QUETIAPINE
     Indication: SCHIZOAFFECTIVE DISORDER
     Dosage: AT NIGHT (WAS ON INCREASING TITRATING DOSE OF 25MG EVERY 3 DAYS FROM 150MG NOCTE)
     Route: 048
     Dates: start: 20160413, end: 20160622

REACTIONS (5)
  - Neuroleptic malignant syndrome [Recovered/Resolved with Sequelae]
  - Respiratory arrest [Recovered/Resolved]
  - Confusional state [Recovered/Resolved]
  - Amnesia [Not Recovered/Not Resolved]
  - Tremor [Recovered/Resolved]

NARRATIVE: CASE EVENT DATE: 20160621
